FAERS Safety Report 16115906 (Version 1)
Quarter: 2019Q1

REPORT INFORMATION
  Report Type: Spontaneous
  Country: US (occurrence: US)
  Receive Date: 20190326
  Receipt Date: 20190326
  Transmission Date: 20190418
  Serious: No
  Sender: FDA-Public Use
  Company Number: US-TEVA-2019-US-1029683

PATIENT
  Sex: Male

DRUGS (6)
  1. ESCITALOPRAM [Suspect]
     Active Substance: ESCITALOPRAM OXALATE
     Indication: DEPRESSION
     Dates: end: 20190313
  2. LAMOTRIGINE. [Concomitant]
     Active Substance: LAMOTRIGINE
  3. RANITIDINE. [Concomitant]
     Active Substance: RANITIDINE
  4. TRAZODONE [Concomitant]
     Active Substance: TRAZODONE HYDROCHLORIDE
  5. HUMIRA [Concomitant]
     Active Substance: ADALIMUMAB
  6. ESCITALOPRAM [Suspect]
     Active Substance: ESCITALOPRAM OXALATE
     Indication: POST-TRAUMATIC STRESS DISORDER

REACTIONS (1)
  - Drug screen positive [Unknown]
